FAERS Safety Report 7434450-6 (Version None)
Quarter: 2011Q2

REPORT INFORMATION
  Report Type: 
  Country: None (occurrence: None)
  Receive Date: 20110425
  Receipt Date: 20110419
  Transmission Date: 20111010
  Serious: Yes (Hospitalization, Other)
  Sender: FDA-Public Use
  Company Number: US-TEVA-277672USA

PATIENT
  Sex: Male

DRUGS (2)
  1. HYDROXYUREA [Suspect]
     Dosage: 500 MILLIGRAM;
     Dates: start: 20110201, end: 20110301
  2. HYDROXYUREA [Suspect]
     Indication: PLATELET DISORDER
     Dosage: 1000 MILLIGRAM;
     Dates: start: 20110301, end: 20110401

REACTIONS (8)
  - PULMONARY EMBOLISM [None]
  - DYSPNOEA [None]
  - ASTHENIA [None]
  - PYREXIA [None]
  - TREMOR [None]
  - URINE OUTPUT DECREASED [None]
  - URINARY INCONTINENCE [None]
  - LOSS OF CONSCIOUSNESS [None]
